FAERS Safety Report 17915066 (Version 3)
Quarter: 2020Q4

REPORT INFORMATION
  Report Type: Report from Study
  Country: None (occurrence: US)
  Receive Date: 20200619
  Receipt Date: 20201013
  Transmission Date: 20210113
  Serious: Yes (Hospitalization, Other)
  Sender: FDA-Public Use
  Company Number: US-ABBVIE-20K-163-3447581-00

PATIENT
  Sex: Male
  Weight: 99.88 kg

DRUGS (4)
  1. METOPROLOL. [Concomitant]
     Active Substance: METOPROLOL
     Indication: HYPERTENSION
  2. HUMIRA [Suspect]
     Active Substance: ADALIMUMAB
     Indication: OSTEOARTHRITIS
     Route: 058
     Dates: start: 202007
  3. HUMIRA [Suspect]
     Active Substance: ADALIMUMAB
     Indication: RHEUMATOID ARTHRITIS
     Dosage: ALMOST 10 YEARS
     Route: 058
     Dates: start: 2009, end: 2019
  4. CIMZIA [Suspect]
     Active Substance: CERTOLIZUMAB PEGOL
     Indication: PRODUCT USED FOR UNKNOWN INDICATION
     Route: 065

REACTIONS (8)
  - Balance disorder [Unknown]
  - Off label use [Unknown]
  - Hypotension [Recovered/Resolved]
  - Wrist fracture [Unknown]
  - Syncope [Recovered/Resolved]
  - Concussion [Recovered/Resolved]
  - Weight decreased [Unknown]
  - Hand deformity [Unknown]

NARRATIVE: CASE EVENT DATE: 2019
